FAERS Safety Report 5946901-4 (Version None)
Quarter: 2008Q4

REPORT INFORMATION
  Report Type: 
  Country: None (occurrence: None)
  Receive Date: 20081107
  Receipt Date: 20081107
  Transmission Date: 20090506
  Serious: No
  Sender: FDA-Public Use
  Company Number: None

PATIENT
  Age: 54 Year
  Sex: Female
  Weight: 127.0072 kg

DRUGS (2)
  1. LEVAQUIN [Suspect]
     Indication: KIDNEY INFECTION
     Dosage: 500 MG 2 X Q D PO
     Route: 048
     Dates: start: 20080905, end: 20080913
  2. LEVAQUIN [Suspect]
     Indication: URINARY TRACT INFECTION
     Dosage: 500 MG 2 X Q D PO
     Route: 048
     Dates: start: 20080905, end: 20080913

REACTIONS (4)
  - ASTHENIA [None]
  - IMPAIRED WORK ABILITY [None]
  - INFLAMMATION [None]
  - PAIN [None]
